FAERS Safety Report 7057159-X (Version None)
Quarter: 2010Q4

REPORT INFORMATION
  Report Type: 
  Country: None (occurrence: None)
  Receive Date: 20101022
  Receipt Date: 20101013
  Transmission Date: 20110411
  Serious: Yes (Other)
  Sender: FDA-Public Use
  Company Number: PHHY2009CA46649

PATIENT
  Sex: Female
  Weight: 75 kg

DRUGS (10)
  1. ACLASTA [Suspect]
     Indication: OSTEOPOROSIS
     Dosage: UNK
     Dates: start: 20090916
  2. FOSAMAX [Concomitant]
     Dosage: 1 DOSE PER REFLUX
     Dates: start: 20090301, end: 20090301
  3. ACTONEL [Concomitant]
     Dosage: X1DOSE PER REFLUX
     Dates: start: 20080901, end: 20080901
  4. DIDROCAL [Concomitant]
     Dosage: 400 MG DAILY
  5. EVISTA [Concomitant]
     Dosage: 670 MG DAILY
  6. HRT [Concomitant]
     Dosage: DAILY
  7. FORTEO [Concomitant]
     Dosage: 20 MG DAILY
  8. MIACALCIN [Concomitant]
     Dosage: 200 UI DAILY
     Route: 045
  9. VITAMIN D SUPPLEMENT [Concomitant]
     Dosage: 400 IU
     Dates: start: 20060101
  10. CALCIUM SUPPLEMENT [Concomitant]
     Dosage: 3000 MG DAILY
     Dates: start: 20060101

REACTIONS (4)
  - ARTIFICIAL CROWN PROCEDURE [None]
  - DECREASED ACTIVITY [None]
  - ENDODONTIC PROCEDURE [None]
  - FALL [None]
